FAERS Safety Report 25523441 (Version 1)
Quarter: 2025Q3

REPORT INFORMATION
  Report Type: Spontaneous
  Country: CN (occurrence: CN)
  Receive Date: 20250707
  Receipt Date: 20250707
  Transmission Date: 20251021
  Serious: Yes (Hospitalization, Other)
  Sender: Norvium Bioscience
  Company Number: CN-Norvium Bioscience LLC-080364

PATIENT
  Age: 68 Year
  Sex: Female
  Weight: 65 kg

DRUGS (13)
  1. PREGABALIN [Suspect]
     Active Substance: PREGABALIN
     Indication: Pain in extremity
     Dosage: 1ST DOSE
     Dates: start: 20231226
  2. BACLOFEN [Suspect]
     Active Substance: BACLOFEN
     Indication: Pain in extremity
     Dosage: 1ST DOSE
     Dates: start: 20231226
  3. AMLODIPINE BESYLATE [Concomitant]
     Active Substance: AMLODIPINE BESYLATE
     Indication: Product used for unknown indication
  4. OMEPRAZOLE [Concomitant]
     Active Substance: OMEPRAZOLE
     Indication: Product used for unknown indication
  5. METOPROLOL TARTRATE [Concomitant]
     Active Substance: METOPROLOL TARTRATE
     Indication: Product used for unknown indication
  6. ISOSORBIDE DINITRA [Concomitant]
     Indication: Product used for unknown indication
  7. ATORVASTATIN [Concomitant]
     Active Substance: ATORVASTATIN
     Indication: Product used for unknown indication
  8. ASPIRIN [Concomitant]
     Active Substance: ASPIRIN
     Indication: Product used for unknown indication
  9. ALLOPURINOL [Concomitant]
     Active Substance: ALLOPURINOL
     Indication: Product used for unknown indication
  10. PREGABALIN [Suspect]
     Active Substance: PREGABALIN
     Indication: Pain in extremity
     Dates: start: 20231227
  11. BACLOFEN [Suspect]
     Active Substance: BACLOFEN
     Indication: Pain in extremity
     Dates: start: 20231227
  12. PREGABALIN [Suspect]
     Active Substance: PREGABALIN
     Indication: Pain in extremity
     Dosage: 2ND DOSE
     Dates: start: 20231226
  13. BACLOFEN [Suspect]
     Active Substance: BACLOFEN
     Indication: Pain in extremity
     Dosage: 2ND DOSE
     Dates: start: 20231226

REACTIONS (1)
  - Depressed level of consciousness [Recovered/Resolved]

NARRATIVE: CASE EVENT DATE: 20231226
